FAERS Safety Report 25363008 (Version 1)
Quarter: 2025Q2

REPORT INFORMATION
  Report Type: Spontaneous
  Country: US (occurrence: US)
  Receive Date: 20250527
  Receipt Date: 20250527
  Transmission Date: 20250717
  Serious: Yes (Life-Threatening, Hospitalization, Other)
  Sender: PFIZER
  Company Number: US-PFIZER INC-PV202500062183

PATIENT
  Age: 12 Year
  Sex: Male

DRUGS (6)
  1. VANCOMYCIN HYDROCHLORIDE [Suspect]
     Active Substance: VANCOMYCIN HYDROCHLORIDE
     Indication: Meningitis
  2. VANCOMYCIN HYDROCHLORIDE [Suspect]
     Active Substance: VANCOMYCIN HYDROCHLORIDE
     Indication: Bradycardia
  3. VANCOMYCIN HYDROCHLORIDE [Suspect]
     Active Substance: VANCOMYCIN HYDROCHLORIDE
     Indication: Tachypnoea
  4. VANCOMYCIN HYDROCHLORIDE [Suspect]
     Active Substance: VANCOMYCIN HYDROCHLORIDE
     Indication: Brain abscess
  5. CEFTRIAXONE [Suspect]
     Active Substance: CEFTRIAXONE
     Indication: Meningitis
     Route: 042
  6. ACYCLOVIR [Suspect]
     Active Substance: ACYCLOVIR
     Indication: Meningitis

REACTIONS (1)
  - Drug ineffective [Unknown]
